FAERS Safety Report 5779031-5 (Version None)
Quarter: 2008Q2

REPORT INFORMATION
  Report Type: 
  Country: None (occurrence: None)
  Receive Date: 20080619
  Receipt Date: 20080616
  Transmission Date: 20081010
  Serious: Yes (Other)
  Sender: FDA-Public Use
  Company Number: GB-BRISTOL-MYERS SQUIBB COMPANY-14181598

PATIENT
  Age: 82 Year
  Sex: Male
  Weight: 71 kg

DRUGS (4)
  1. SINEMET [Suspect]
     Dosage: 1 DOSAGE FORM = 1 TABLET.
  2. EXELON [Concomitant]
     Dosage: 1 DOSAGE FORM = 1.5MG MORNING + 3MG EVENING. DOSE REDUCED TO 1.5MG BID
  3. PILOCARPINE HCL [Concomitant]
     Dosage: EYE DROPS STRENGTH: 2%W/V
  4. TIMOPTIC [Concomitant]
     Dosage: EYE DROPS (TO RIGHT EYE) STRENGTH: 0.5%

REACTIONS (1)
  - INTRAOCULAR PRESSURE INCREASED [None]
